FAERS Safety Report 7964799-X (Version None)
Quarter: 2011Q4

REPORT INFORMATION
  Report Type: 
  Country: None (occurrence: None)
  Receive Date: 20111208
  Receipt Date: 20111028
  Transmission Date: 20120403
  Serious: Yes (Other)
  Sender: FDA-Public Use
  Company Number: DZ-ROCHE-1012331

PATIENT
  Age: 53 Year
  Sex: Female

DRUGS (2)
  1. COPEGUS [Suspect]
     Indication: HEPATITIS C
     Dates: start: 20100101, end: 20110101
  2. PEGASYS [Suspect]
     Indication: HEPATITIS C
     Dates: start: 20100101, end: 20110101

REACTIONS (7)
  - EMOTIONAL DISORDER [None]
  - PYREXIA [None]
  - NERVOUS SYSTEM DISORDER [None]
  - VOMITING [None]
  - VERTIGO [None]
  - LEUKOPENIA [None]
  - MUSCULOSKELETAL PAIN [None]
